FAERS Safety Report 10021795 (Version 1)
Quarter: 2014Q1

REPORT INFORMATION
  Report Type: Spontaneous
  Country: US (occurrence: None)
  Receive Date: 20140313
  Receipt Date: 20140313
  Transmission Date: 20141002
  Serious: Yes (Disabling, Other)
  Sender: FDA-Public Use
  Company Number: 201403025

PATIENT
  Age: 56 Year
  Sex: Male

DRUGS (1)
  1. TESTIM [Suspect]
     Indication: BLOOD TESTOSTERONE DECREASED
     Route: 062

REACTIONS (6)
  - Cerebrovascular accident [None]
  - Emotional disorder [None]
  - Quality of life decreased [None]
  - Amnesia [None]
  - Impaired work ability [None]
  - Anxiety [None]
